FAERS Safety Report 4840186-8 (Version None)
Quarter: 2005Q4

REPORT INFORMATION
  Report Type: 
  Country: None (occurrence: None)
  Receive Date: 20051125
  Receipt Date: 20051118
  Transmission Date: 20060501
  Serious: Yes (Other)
  Sender: FDA-Public Use
  Company Number: OMPQ-PR-0510S-1332

PATIENT
  Sex: Male

DRUGS (2)
  1. OMNIPAQUE 140 [Suspect]
     Indication: HYPOAESTHESIA
     Dosage: 12 ML, SINGLE DOSE, I.T.
     Route: 038
     Dates: start: 20050216, end: 20050216
  2. OMNIPAQUE 140 [Suspect]
     Indication: INTERVERTEBRAL DISC DISORDER
     Dosage: 12 ML, SINGLE DOSE, I.T.
     Route: 038
     Dates: start: 20050216, end: 20050216

REACTIONS (12)
  - ARACHNOIDITIS [None]
  - COGNITIVE DISORDER [None]
  - CONDITION AGGRAVATED [None]
  - DEPRESSION [None]
  - FATIGUE [None]
  - HEADACHE [None]
  - MENINGITIS CHEMICAL [None]
  - MUSCULOSKELETAL STIFFNESS [None]
  - NECK PAIN [None]
  - POST PROCEDURAL COMPLICATION [None]
  - SENSORY LOSS [None]
  - SHOULDER PAIN [None]
